FAERS Safety Report 8983014 (Version 2)
Quarter: 2013Q1

REPORT INFORMATION
  Report Type: Spontaneous
  Country: FR (occurrence: FR)
  Receive Date: 20121221
  Receipt Date: 20130124
  Transmission Date: 20140127
  Serious: Yes (Hospitalization, Other)
  Sender: FDA-Public Use
  Company Number: FR-ABBOTT-12P-056-1022295-00

PATIENT
  Sex: Male
  Weight: 70 kg

DRUGS (3)
  1. HUMIRA [Suspect]
     Indication: PSORIATIC ARTHROPATHY
     Route: 058
     Dates: start: 201008, end: 201210
  2. METHADONE [Concomitant]
     Indication: DRUG DEPENDENCE
     Route: 048
     Dates: start: 2003
  3. DIAZEPAM (VALIUM) [Concomitant]
     Indication: DRUG DEPENDENCE
     Route: 048

REACTIONS (2)
  - Colonic haematoma [Recovered/Resolved]
  - Pancreatitis acute [Unknown]
